FAERS Safety Report 22144187 (Version 3)
Quarter: 2025Q3

REPORT INFORMATION
  Report Type: Spontaneous
  Country: JP (occurrence: JP)
  Receive Date: 20230327
  Receipt Date: 20250901
  Transmission Date: 20251021
  Serious: Yes (Hospitalization, Other)
  Sender: BRISTOL-MYERS SQUIBB COMPANY
  Company Number: JP-ONO-2023JP007149

PATIENT
  Age: 75 Year
  Sex: Male
  Weight: 56 kg

DRUGS (12)
  1. OPDIVO [Suspect]
     Active Substance: NIVOLUMAB
     Indication: Gastric cancer
     Route: 041
     Dates: start: 20220819, end: 20220928
  2. OXALIPLATIN [Concomitant]
     Active Substance: OXALIPLATIN
     Indication: Gastric cancer
     Route: 042
     Dates: start: 20220819, end: 20220928
  3. GIMERACIL\OTERACIL\TEGAFUR [Concomitant]
     Active Substance: GIMERACIL\OTERACIL POTASSIUM\TEGAFUR
     Indication: Gastric cancer
     Dates: start: 20220819, end: 20220928
  4. PACLITAXEL [Concomitant]
     Active Substance: PACLITAXEL
     Indication: Gastric cancer
     Route: 042
     Dates: start: 20221102
  5. PACLITAXEL [Concomitant]
     Active Substance: PACLITAXEL
     Route: 042
     Dates: start: 20221130
  6. PACLITAXEL [Concomitant]
     Active Substance: PACLITAXEL
     Route: 042
     Dates: start: 20221228
  7. PACLITAXEL [Concomitant]
     Active Substance: PACLITAXEL
     Route: 042
     Dates: start: 20230201
  8. CYRAMZA [Concomitant]
     Active Substance: RAMUCIRUMAB
     Indication: Gastric cancer
     Route: 042
     Dates: start: 20221102
  9. CYRAMZA [Concomitant]
     Active Substance: RAMUCIRUMAB
     Route: 042
     Dates: start: 20221130
  10. CYRAMZA [Concomitant]
     Active Substance: RAMUCIRUMAB
     Route: 042
     Dates: start: 20221228
  11. CYRAMZA [Concomitant]
     Active Substance: RAMUCIRUMAB
     Route: 042
     Dates: start: 20230201
  12. SILODOSIN [Concomitant]
     Active Substance: SILODOSIN
     Indication: Product used for unknown indication
     Route: 048

REACTIONS (4)
  - Adrenocorticotropic hormone deficiency [Unknown]
  - Malignant neoplasm progression [Unknown]
  - Fatigue [Unknown]
  - Dehydration [Unknown]

NARRATIVE: CASE EVENT DATE: 20230301
